FAERS Safety Report 21503888 (Version 2)
Quarter: 2022Q4

REPORT INFORMATION
  Report Type: Spontaneous
  Country: FR (occurrence: FR)
  Receive Date: 20221025
  Receipt Date: 20221230
  Transmission Date: 20230113
  Serious: Yes (Other)
  Sender: FDA-Public Use
  Company Number: FR-BIOVITRUM-2022FR12050

PATIENT
  Age: 68 Year
  Sex: Male

DRUGS (2)
  1. KINERET [Suspect]
     Active Substance: ANAKINRA
     Indication: Autoinflammatory disease
     Dosage: 100 MG/D
  2. KINERET [Suspect]
     Active Substance: ANAKINRA

REACTIONS (9)
  - Facial paralysis [Unknown]
  - Cognitive disorder [Unknown]
  - Back pain [Unknown]
  - Diplopia [Unknown]
  - Autoinflammatory disease [Unknown]
  - Condition aggravated [Unknown]
  - Muscular weakness [Unknown]
  - Headache [Unknown]
  - Off label use [Unknown]
